FAERS Safety Report 12494293 (Version 14)
Quarter: 2019Q2

REPORT INFORMATION
  Report Type: Report from Study
  Country: ZA (occurrence: ZA)
  Receive Date: 20160623
  Receipt Date: 20190417
  Transmission Date: 20190711
  Serious: Yes (Other)
  Sender: FDA-Public Use
  Company Number: PHHY2016ZA084563

PATIENT
  Sex: Female
  Weight: 67 kg

DRUGS (9)
  1. FERIPROX [Suspect]
     Active Substance: DEFERIPRONE
     Dosage: 9 DF, QD (9 TABLETS PER DAY)
     Route: 065
  2. ELTROXIN [Concomitant]
     Active Substance: LEVOTHYROXINE
     Indication: HYPOTHYROIDISM
     Dosage: 1 DF, QD
     Route: 065
  3. DESFERAL [Suspect]
     Active Substance: DEFEROXAMINE MESYLATE
     Dosage: 6 VIALS 7 DAYS WEEK
     Route: 058
     Dates: start: 201902
  4. EXJADE [Suspect]
     Active Substance: DEFERASIROX
     Indication: THALASSAEMIA
     Dosage: 2000 MG, QD
     Route: 065
     Dates: start: 201804
  5. FERIPROX [Suspect]
     Active Substance: DEFERIPRONE
     Indication: IRON OVERLOAD
     Dosage: 9 DF, QD (9 TABLETS PER DAY)
     Route: 065
     Dates: start: 2010
  6. LOSEC [Concomitant]
     Active Substance: OMEPRAZOLE
     Indication: PRODUCT USED FOR UNKNOWN INDICATION
     Dosage: 10 MG, QD
     Route: 065
     Dates: start: 2016
  7. DESFERAL [Suspect]
     Active Substance: DEFEROXAMINE MESYLATE
     Indication: THALASSAEMIA
     Dosage: 6 VIALS TWICE A WEEK
     Route: 058
     Dates: start: 1990
  8. INSULIN [Concomitant]
     Active Substance: INSULIN NOS
     Indication: PRODUCT USED FOR UNKNOWN INDICATION
     Dosage: PRN
     Route: 065
  9. OMEPRAZOLE. [Concomitant]
     Active Substance: OMEPRAZOLE
     Indication: PRODUCT USED FOR UNKNOWN INDICATION
     Dosage: 10 MG, QD
     Route: 065

REACTIONS (15)
  - Musculoskeletal pain [Unknown]
  - Gastrointestinal disorder [Unknown]
  - Blood glucose decreased [Recovering/Resolving]
  - Vomiting [Unknown]
  - Type 1 diabetes mellitus [Not Recovered/Not Resolved]
  - Diarrhoea [Unknown]
  - Nausea [Unknown]
  - Serum ferritin increased [Not Recovered/Not Resolved]
  - Dysphonia [Unknown]
  - Blood calcium abnormal [Unknown]
  - Product use issue [Unknown]
  - Renal function test abnormal [Unknown]
  - Hypothyroidism [Not Recovered/Not Resolved]
  - Blood cholesterol increased [Not Recovered/Not Resolved]
  - Hypersensitivity [Unknown]

NARRATIVE: CASE EVENT DATE: 2000
